FAERS Safety Report 24144296 (Version 3)
Quarter: 2025Q3

REPORT INFORMATION
  Report Type: Spontaneous
  Country: US (occurrence: US)
  Receive Date: 20240728
  Receipt Date: 20250816
  Transmission Date: 20251020
  Serious: No
  Sender: ALEXION PHARMACEUTICALS
  Company Number: 2024A168984

PATIENT
  Sex: Male

DRUGS (2)
  1. BYETTA [Suspect]
     Active Substance: EXENATIDE
     Indication: Short-bowel syndrome
  2. BYETTA [Suspect]
     Active Substance: EXENATIDE

REACTIONS (4)
  - Short-bowel syndrome [Unknown]
  - Device use issue [Unknown]
  - Incorrect dose administered by device [Unknown]
  - Needle issue [Unknown]
